FAERS Safety Report 4625614-5 (Version None)
Quarter: 2005Q1

REPORT INFORMATION
  Report Type: 
  Country: None (occurrence: None)
  Receive Date: 20050331
  Receipt Date: 20050331
  Transmission Date: 20050727
  Serious: Yes (Other)
  Sender: FDA-Public Use
  Company Number: None

PATIENT
  Age: 53 Year
  Sex: Female
  Weight: 61.2356 kg

DRUGS (1)
  1. DIMETHYL SULFOXIDE [Suspect]
     Indication: CYSTITIS INTERSTITIAL
     Dosage: ONCE
     Dates: start: 20040802

REACTIONS (3)
  - BLADDER SPASM [None]
  - PAIN [None]
  - POST PROCEDURAL PAIN [None]
